FAERS Safety Report 18800222 (Version 1)
Quarter: 2021Q1

REPORT INFORMATION
  Report Type: Report from Study
  Country: US (occurrence: US)
  Receive Date: 20210128
  Receipt Date: 20210128
  Transmission Date: 20210419
  Serious: Yes (Other)
  Sender: FDA-Public Use
  Company Number: US-ACADIA PHARMACEUTICALS INC.-ACA-2021-PIM-000322

PATIENT
  Age: 90 Year
  Sex: Female

DRUGS (1)
  1. NUPLAZID [Suspect]
     Active Substance: PIMAVANSERIN TARTRATE
     Dosage: UNK
     Route: 065

REACTIONS (7)
  - Sedation [Unknown]
  - Motor dysfunction [Unknown]
  - Judgement impaired [Unknown]
  - Tremor [Unknown]
  - Orthostatic hypotension [Unknown]
  - Syncope [Unknown]
  - Cognitive disorder [Unknown]
